FAERS Safety Report 6950809-5 (Version None)
Quarter: 2010Q3

REPORT INFORMATION
  Report Type: 
  Country: None (occurrence: None)
  Receive Date: 20100828
  Receipt Date: 20100224
  Transmission Date: 20110219
  Serious: No
  Sender: FDA-Public Use
  Company Number: US-ABBOTT-10P-163-0629251-00

PATIENT
  Sex: Male
  Weight: 132.57 kg

DRUGS (5)
  1. NIASPAN [Suspect]
     Indication: HIGH DENSITY LIPOPROTEIN DECREASED
     Dates: start: 20091204, end: 20100223
  2. IBUPROFEN [Concomitant]
     Indication: BACK PAIN
  3. IBUPROFEN [Concomitant]
     Indication: SPINAL FRACTURE
  4. METFORMIN [Concomitant]
     Indication: DIABETES MELLITUS
  5. LISINOPRIL [Concomitant]
     Indication: HYPERTENSION

REACTIONS (5)
  - CHEST DISCOMFORT [None]
  - ERYTHEMA [None]
  - FEELING HOT [None]
  - FLUSHING [None]
  - PALPITATIONS [None]
